FAERS Safety Report 6874970-6 (Version None)
Quarter: 2010Q2

REPORT INFORMATION
  Report Type: 
  Country: None (occurrence: None)
  Receive Date: 20100616
  Receipt Date: 20090602
  Transmission Date: 20101027
  Serious: Yes (Other)
  Sender: FDA-Public Use
  Company Number: 1000005071

PATIENT
  Age: 11 Year
  Sex: Male

DRUGS (3)
  1. NAMENDA [Suspect]
     Indication: AUTISM
     Dosage: 5 MG (5 MG,1 IN 1 D),ORAL
     Route: 048
     Dates: start: 20090212, end: 20090225
  2. NAMENDA [Suspect]
     Indication: AUTISM
     Dosage: 10 MG (5 MG,2 IN 1 D),ORAL
     Route: 048
     Dates: start: 20090226, end: 20090302
  3. ZOLOFT [Concomitant]

REACTIONS (1)
  - GRAND MAL CONVULSION [None]
